FAERS Safety Report 4764949-2 (Version None)
Quarter: 2005Q3

REPORT INFORMATION
  Report Type: 
  Country: None (occurrence: None)
  Receive Date: 20050907
  Receipt Date: 20050824
  Transmission Date: 20060218
  Serious: Yes (Hospitalization)
  Sender: FDA-Public Use
  Company Number: 216712

PATIENT
  Age: 39 Year
  Sex: Female
  Weight: 98 kg

DRUGS (5)
  1. RAPTIVA [Suspect]
     Indication: DERMATITIS ATOPIC
     Dosage: 1 MG/KG, 1/WEEK, SUBCUTANEOUS
     Route: 058
     Dates: start: 20050718, end: 20050725
  2. HYDROXYZINE [Concomitant]
  3. ADVAIR DISKUS 100/50 [Concomitant]
  4. ALBUTEROL [Concomitant]
  5. FUROSEMIDE [Concomitant]

REACTIONS (7)
  - ASTHMA [None]
  - CONJUNCTIVITIS BACTERIAL [None]
  - CULTURE POSITIVE [None]
  - ECZEMA HERPETICUM [None]
  - EYE INFECTION STAPHYLOCOCCAL [None]
  - HERPES SIMPLEX [None]
  - IRON DEFICIENCY ANAEMIA [None]
